FAERS Safety Report 8403210-1 (Version None)
Quarter: 2012Q2

REPORT INFORMATION
  Report Type: 
  Country: None (occurrence: None)
  Receive Date: 20120601
  Receipt Date: 20120524
  Transmission Date: 20120825
  Serious: Yes (Hospitalization, Disabling, Other)
  Sender: FDA-Public Use
  Company Number: US-MERCK-1202USA03507

PATIENT
  Age: 62 Year
  Sex: Female
  Weight: 72 kg

DRUGS (6)
  1. FOSAMAX [Suspect]
     Indication: OSTEOPENIA
     Route: 048
     Dates: start: 19950101, end: 20090701
  2. FOSAMAX PLUS D [Suspect]
     Indication: OSTEOPOROSIS
     Route: 048
  3. FOSAMAX PLUS D [Suspect]
     Indication: OSTEOPENIA
     Route: 048
  4. FOSAMAX [Suspect]
     Indication: OSTEOPOROSIS
     Route: 048
     Dates: start: 19950101, end: 20090701
  5. VITAMINS (UNSPECIFIED) [Concomitant]
     Route: 065
     Dates: start: 19920101
  6. PRILOSEC [Concomitant]
     Route: 065
     Dates: start: 20070101

REACTIONS (25)
  - HYPERTENSION [None]
  - COLONIC POLYP [None]
  - LOW TURNOVER OSTEOPATHY [None]
  - GASTROOESOPHAGEAL REFLUX DISEASE [None]
  - TOOTH DISORDER [None]
  - HAEMORRHAGIC ANAEMIA [None]
  - ANXIETY [None]
  - INSOMNIA [None]
  - OEDEMA PERIPHERAL [None]
  - CHOLELITHIASIS [None]
  - RHINITIS ALLERGIC [None]
  - PAIN IN JAW [None]
  - ONYCHOMYCOSIS [None]
  - CARPAL TUNNEL SYNDROME [None]
  - IRON DEFICIENCY ANAEMIA [None]
  - JOINT CREPITATION [None]
  - PELVIC FRACTURE [None]
  - BACK DISORDER [None]
  - SCOLIOSIS [None]
  - MIGRAINE [None]
  - CONSTIPATION [None]
  - FEMUR FRACTURE [None]
  - SINUS HEADACHE [None]
  - INTERVERTEBRAL DISC DEGENERATION [None]
  - DEPRESSION [None]
